FAERS Safety Report 5771893-0 (Version None)
Quarter: 2008Q2

REPORT INFORMATION
  Report Type: 
  Country: None (occurrence: None)
  Receive Date: 20080613
  Receipt Date: 20080606
  Transmission Date: 20081010
  Serious: Yes (Hospitalization)
  Sender: FDA-Public Use
  Company Number: B0524680A

PATIENT
  Age: 60 Year
  Sex: Male

DRUGS (1)
  1. AUGMENTIN '125' [Suspect]
     Indication: SINUSITIS
     Dosage: 125MG THREE TIMES PER DAY
     Route: 048
     Dates: start: 20080416, end: 20080423

REACTIONS (8)
  - ABNORMAL FAECES [None]
  - CHROMATURIA [None]
  - HEPATITIS CHOLESTATIC [None]
  - JAUNDICE [None]
  - NAUSEA [None]
  - OCULAR ICTERUS [None]
  - RED BLOOD CELL SEDIMENTATION RATE INCREASED [None]
  - YELLOW SKIN [None]
